FAERS Safety Report 7378223-1 (Version None)
Quarter: 2011Q1

REPORT INFORMATION
  Report Type: 
  Country: None (occurrence: None)
  Receive Date: 20110328
  Receipt Date: 20110321
  Transmission Date: 20110831
  Serious: Yes (Other)
  Sender: FDA-Public Use
  Company Number: A0919932A

PATIENT
  Age: 63 Year
  Sex: Female

DRUGS (3)
  1. UNKNOWN [Concomitant]
  2. TYKERB [Suspect]
     Dosage: 1250MG PER DAY
     Route: 048
     Dates: start: 20110205, end: 20110301
  3. CAPECITABINE [Suspect]
     Dates: start: 20110205, end: 20110301

REACTIONS (1)
  - CONVULSION [None]
